FAERS Safety Report 16785218 (Version 1)
Quarter: 2019Q3

REPORT INFORMATION
  Report Type: Spontaneous
  Country: US (occurrence: US)
  Receive Date: 20190909
  Receipt Date: 20190909
  Transmission Date: 20191005
  Serious: No
  Sender: FDA-Public Use
  Company Number: US-MYLANLABS-2019M1079554

PATIENT
  Age: 47 Year
  Sex: Female
  Weight: 77 kg

DRUGS (2)
  1. LIDOCAINE PATCH [Suspect]
     Active Substance: LIDOCAINE
     Indication: BACK PAIN
     Dosage: 5 PERCENT (12 HOURS ON/24 HOUR TIME PERIOD)
     Route: 003
     Dates: start: 20190808
  2. ALLEVESS [Concomitant]
     Active Substance: CAPSAICIN\MENTHOL
     Dosage: UNK

REACTIONS (3)
  - Off label use [Not Recovered/Not Resolved]
  - Product quality issue [Not Recovered/Not Resolved]
  - Product adhesion issue [Not Recovered/Not Resolved]

NARRATIVE: CASE EVENT DATE: 20190808
